FAERS Safety Report 4453802-X (Version None)
Quarter: 2004Q3

REPORT INFORMATION
  Report Type: 
  Country: None (occurrence: None)
  Receive Date: 20040920
  Receipt Date: 20040909
  Transmission Date: 20050211
  Serious: Yes (Hospitalization)
  Sender: FDA-Public Use
  Company Number: PHHO2004BE12603

PATIENT
  Age: 59 Year
  Sex: Male
  Weight: 69 kg

DRUGS (4)
  1. SIMULECT [Suspect]
     Indication: LIVER TRANSPLANT
     Dosage: 20 MG, DAY 0
     Route: 042
     Dates: start: 20030807, end: 20030807
  2. SIMULECT [Suspect]
     Dosage: 20 MG, DAY 4
     Route: 042
     Dates: start: 20030830, end: 20030830
  3. PENSTAPHO [Concomitant]
  4. NEORAL [Suspect]
     Indication: LIVER TRANSPLANT

REACTIONS (3)
  - DRUG TOXICITY [None]
  - LOCALISED OSTEOARTHRITIS [None]
  - STAPHYLOCOCCAL SEPSIS [None]
